FAERS Safety Report 22364511 (Version 12)
Quarter: 2025Q3

REPORT INFORMATION
  Report Type: Report from Study
  Country: US (occurrence: US)
  Receive Date: 20230525
  Receipt Date: 20250812
  Transmission Date: 20251020
  Serious: Yes (Hospitalization, Other)
  Sender: TAKEDA
  Company Number: US-TAKEDA-2023TUS045606

PATIENT
  Age: 63 Year
  Sex: Male

DRUGS (5)
  1. ADVATE [Suspect]
     Active Substance: ANTIHEMOPHILIC FACTOR, HUMAN RECOMBINANT
     Indication: Haemorrhage
  2. ADVATE [Suspect]
     Active Substance: ANTIHEMOPHILIC FACTOR, HUMAN RECOMBINANT
     Dosage: 2500 INTERNATIONAL UNIT, QD
  3. ADVATE [Suspect]
     Active Substance: ANTIHEMOPHILIC FACTOR, HUMAN RECOMBINANT
  4. ADVATE [Suspect]
     Active Substance: ANTIHEMOPHILIC FACTOR, HUMAN RECOMBINANT
  5. ADVATE [Suspect]
     Active Substance: ANTIHEMOPHILIC FACTOR, HUMAN RECOMBINANT

REACTIONS (11)
  - Intestinal obstruction [Unknown]
  - Haemarthrosis [Recovered/Resolved]
  - Haemorrhage [Not Recovered/Not Resolved]
  - Gastric haemorrhage [Unknown]
  - Epistaxis [Unknown]
  - Contusion [Unknown]
  - Pain in extremity [Unknown]
  - Large intestine polyp [Unknown]
  - Pharyngeal disorder [Unknown]
  - Fall [Unknown]
  - Post procedural swelling [Unknown]

NARRATIVE: CASE EVENT DATE: 20230501
